FAERS Safety Report 4894920-1 (Version None)
Quarter: 2006Q1

REPORT INFORMATION
  Report Type: 
  Country: None (occurrence: None)
  Receive Date: 20060130
  Receipt Date: 20050310
  Transmission Date: 20060701
  Serious: No
  Sender: FDA-Public Use
  Company Number: US-BRISTOL-MYERS SQUIBB COMPANY-12892220

PATIENT
  Age: 40 Year
  Sex: Female
  Weight: 68 kg

DRUGS (1)
  1. GLUCOPHAGE [Suspect]
     Route: 048

REACTIONS (1)
  - HYPERHIDROSIS [None]
